FAERS Safety Report 16850963 (Version 2)
Quarter: 2019Q3

REPORT INFORMATION
  Report Type: Spontaneous
  Country: IN (occurrence: IN)
  Receive Date: 20190925
  Receipt Date: 20190930
  Transmission Date: 20191005
  Serious: Yes (Hospitalization, Other)
  Sender: FDA-Public Use
  Company Number: IN-SA-2019SA262824

PATIENT
  Age: 69 Year
  Sex: Male

DRUGS (14)
  1. ISONIAZID. [Concomitant]
     Active Substance: ISONIAZID
     Dosage: RESTARTED
  2. ETHAMBUTOL [Concomitant]
     Active Substance: ETHAMBUTOL HYDROCHLORIDE
     Dosage: UNK; RESTARTED
  3. PIRFENIDONE. [Interacting]
     Active Substance: PIRFENIDONE
     Dosage: 1200 MG, QD
  4. PIRFENIDONE. [Interacting]
     Active Substance: PIRFENIDONE
     Dosage: 1800 MG, QD
  5. ISONIAZID. [Concomitant]
     Active Substance: ISONIAZID
     Indication: PULMONARY TUBERCULOSIS
  6. PYRAZINAMIDE. [Concomitant]
     Active Substance: PYRAZINAMIDE
     Dosage: UNK, RESTARTED
  7. OXYGEN. [Concomitant]
     Active Substance: OXYGEN
     Indication: HYPOXIA
  8. ETHAMBUTOL [Concomitant]
     Active Substance: ETHAMBUTOL HYDROCHLORIDE
     Indication: PULMONARY TUBERCULOSIS
  9. PYRAZINAMIDE. [Concomitant]
     Active Substance: PYRAZINAMIDE
     Indication: PULMONARY TUBERCULOSIS
  10. RIFAMPICIN [Suspect]
     Active Substance: RIFAMPIN
     Indication: PULMONARY TUBERCULOSIS
     Dosage: UNK
  11. PIRFENIDONE. [Interacting]
     Active Substance: PIRFENIDONE
     Indication: IDIOPATHIC PULMONARY FIBROSIS
     Dosage: RESTARTED
  12. RIFAMPICIN [Interacting]
     Active Substance: RIFAMPIN
     Dosage: UNK, RESTARTED
  13. PIRFENIDONE. [Interacting]
     Active Substance: PIRFENIDONE
     Dosage: INCREMENTAL DOSES
  14. PIRFENIDONE. [Interacting]
     Active Substance: PIRFENIDONE
     Dosage: UNK, RESTARTED

REACTIONS (8)
  - Dermatitis exfoliative [Recovered/Resolved]
  - Erythema [Recovered/Resolved]
  - Pyrexia [Recovered/Resolved]
  - Drug interaction [Recovered/Resolved]
  - Skin exfoliation [Recovered/Resolved]
  - Pruritus [Recovered/Resolved]
  - Skin lesion [Recovered/Resolved]
  - Bacterial toxaemia [Recovered/Resolved]
